FAERS Safety Report 9932507 (Version 1)
Quarter: 2014Q1

REPORT INFORMATION
  Report Type: Report from Study
  Country: US (occurrence: US)
  Receive Date: 20140228
  Receipt Date: 20140228
  Transmission Date: 20141002
  Serious: No
  Sender: FDA-Public Use
  Company Number: US-ABBVIE-13P-163-1181398-00

PATIENT
  Age: 65 Year
  Sex: Male
  Weight: 83.99 kg

DRUGS (5)
  1. ANDROGEL [Suspect]
     Indication: BLOOD TESTOSTERONE DECREASED
     Dates: start: 2008, end: 201306
  2. HYDROCORT [Concomitant]
     Indication: PITUITARY TUMOUR
  3. LEVOXYL [Concomitant]
     Indication: THYROID DISORDER
  4. PRAVASTATIN [Concomitant]
     Indication: BLOOD CHOLESTEROL INCREASED
  5. CAPTOPRIL [Concomitant]
     Indication: HYPERTENSION

REACTIONS (1)
  - Prostatic specific antigen increased [Recovered/Resolved]
